FAERS Safety Report 25127641 (Version 1)
Quarter: 2025Q1

REPORT INFORMATION
  Report Type: Spontaneous
  Country: IN (occurrence: IN)
  Receive Date: 20250327
  Receipt Date: 20250327
  Transmission Date: 20250409
  Serious: Yes (Hospitalization)
  Sender: ALKEM
  Company Number: None

PATIENT
  Age: 65 Year
  Sex: Male

DRUGS (11)
  1. QUETIAPINE FUMARATE [Suspect]
     Active Substance: QUETIAPINE FUMARATE
     Indication: Behaviour disorder
     Dosage: 12.5 MILLIGRAM, QD (EVERY 1 DAY)
     Route: 065
  2. QUETIAPINE FUMARATE [Suspect]
     Active Substance: QUETIAPINE FUMARATE
     Dosage: 37.5 MILLIGRAM, QD (EVERY 1 DAY)
     Route: 065
  3. CYCLOPHOSPHAMIDE [Concomitant]
     Active Substance: CYCLOPHOSPHAMIDE
     Indication: Central nervous system vasculitis
     Dosage: 500 MILLIGRAM, QD (EVERY 1 DAY) 3 DAYS (INJECTION)
     Route: 065
  4. DIAZEPAM [Concomitant]
     Active Substance: DIAZEPAM
     Indication: Central nervous system vasculitis
     Dosage: 10 MILLIGRAM, BID (EVERY 12 HOUR)
     Route: 048
  5. DIAZEPAM [Concomitant]
     Active Substance: DIAZEPAM
     Dosage: 20 MILLIGRAM, QD (EVERY 1 DAY)
     Route: 048
  6. FOLATE SODIUM [Concomitant]
     Active Substance: FOLATE SODIUM
     Indication: Central nervous system vasculitis
     Dosage: 10 MILLIGRAM, QD (EVERY 1 DAY)
     Route: 065
  7. LEVETIRACETAM [Concomitant]
     Active Substance: LEVETIRACETAM
     Indication: Central nervous system vasculitis
     Dosage: 1 GRAM, QD (EVERY 1 DAY)
     Route: 042
  8. METHYLPREDNISOLONE [Concomitant]
     Active Substance: METHYLPREDNISOLONE
     Indication: Central nervous system vasculitis
     Route: 042
  9. METHYLPREDNISOLONE [Concomitant]
     Active Substance: METHYLPREDNISOLONE
     Route: 042
  10. THIAMINE [Concomitant]
     Active Substance: THIAMINE
     Indication: Central nervous system vasculitis
     Dosage: 100 MILLIGRAM, QD (EVERY 1 DAY)
     Route: 065
  11. TRIHEXYPHENIDYL [Concomitant]
     Active Substance: TRIHEXYPHENIDYL
     Indication: Product used for unknown indication
     Dosage: 4 MILLIGRAM, QD (EVERY 1 DAY)
     Route: 065

REACTIONS (1)
  - Akathisia [Recovered/Resolved]
